FAERS Safety Report 14801492 (Version 1)
Quarter: 2018Q2

REPORT INFORMATION
  Report Type: Report from Study
  Country: NL (occurrence: NL)
  Receive Date: 20180424
  Receipt Date: 20180424
  Transmission Date: 20180711
  Serious: Yes (Hospitalization)
  Sender: FDA-Public Use
  Company Number: NL-ROCHE-2111168

PATIENT
  Age: 72 Year
  Sex: Male

DRUGS (11)
  1. BUMETANIDE. [Concomitant]
     Active Substance: BUMETANIDE
     Route: 065
  2. CARVEDILOL. [Concomitant]
     Active Substance: CARVEDILOL
     Route: 065
  3. ALLOPURINOL. [Concomitant]
     Active Substance: ALLOPURINOL
     Route: 065
  4. TAMSULOSINE [Concomitant]
     Active Substance: TAMSULOSIN HYDROCHLORIDE
     Route: 065
  5. THIAMINE. [Concomitant]
     Active Substance: THIAMINE
     Route: 065
  6. AUGMENTIN [Concomitant]
     Active Substance: AMOXICILLIN\CLAVULANATE POTASSIUM
     Route: 065
     Dates: start: 20161003, end: 20161009
  7. CAPECITABINE. [Suspect]
     Active Substance: CAPECITABINE
     Indication: COLORECTAL CANCER
     Dosage: LAST CYCLE WAS ON 01/AUG/2016
     Route: 065
     Dates: start: 20160307
  8. BEVACIZUMAB. [Suspect]
     Active Substance: BEVACIZUMAB
     Indication: COLORECTAL CANCER
     Dosage: LAST CYCLE WAS ON 01/AUG/2016
     Route: 065
     Dates: start: 20160307
  9. DIGOXINE [Concomitant]
     Active Substance: DIGOXIN
     Route: 065
  10. ACENOCOUMAROL [Concomitant]
     Active Substance: ACENOCOUMAROL
  11. OXAZEPAM. [Concomitant]
     Active Substance: OXAZEPAM

REACTIONS (1)
  - Skin ulcer [Unknown]

NARRATIVE: CASE EVENT DATE: 20160929
